FAERS Safety Report 8432549-9 (Version None)
Quarter: 2012Q2

REPORT INFORMATION
  Report Type: 
  Country: None (occurrence: None)
  Receive Date: 20120607
  Receipt Date: 20120523
  Transmission Date: 20120825
  Serious: Yes (Congenital Anomaly, Other)
  Sender: FDA-Public Use
  Company Number: DKLU1081348

PATIENT
  Sex: Female

DRUGS (7)
  1. LAMOTRIGINE [Concomitant]
  2. LEVOTHYROXINE SODIUM [Concomitant]
  3. ONFI [Suspect]
     Indication: EPILEPSY
     Dosage: TRANSPLACENTAL
     Route: 064
     Dates: start: 20110329, end: 20111013
  4. TOPIRAMATE (TOPRAMATE) [Concomitant]
  5. CARBAMAZEPINE [Concomitant]
  6. FOLIC ACID [Concomitant]
  7. VALPROIC ACID [Concomitant]

REACTIONS (11)
  - CONGENITAL RENAL CYST [None]
  - CONGENITAL CYSTIC KIDNEY DISEASE [None]
  - ATRIAL SEPTAL DEFECT [None]
  - ACOUSTIC STIMULATION TESTS ABNORMAL [None]
  - CAESAREAN SECTION [None]
  - CARDIAC MURMUR [None]
  - CONGENITAL ARTERIAL MALFORMATION [None]
  - RENAL DYSPLASIA [None]
  - MATERNAL DRUGS AFFECTING FOETUS [None]
  - VENTRICULAR SEPTAL DEFECT [None]
  - SMALL FOR DATES BABY [None]
